FAERS Safety Report 7670578 (Version 3)
Quarter: 2013Q3

REPORT INFORMATION
  Report Type: Spontaneous
  Country: US (occurrence: US)
  Receive Date: 20101116
  Receipt Date: 20130801
  Transmission Date: 20140515
  Serious: Yes (Other)
  Sender: FDA-Public Use
  Company Number: US-ROCHE-721637

PATIENT
  Age: 17 Year
  Sex: Male
  Weight: 74.8 kg

DRUGS (2)
  1. ACCUTANE [Suspect]
     Indication: ACNE
     Route: 065
     Dates: start: 19981203, end: 19990227
  2. IBUPROFEN [Concomitant]
     Dosage: AS NEEDED
     Route: 065

REACTIONS (6)
  - Inflammatory bowel disease [Unknown]
  - Crohn^s disease [Unknown]
  - Colitis [Unknown]
  - Acute sinusitis [Unknown]
  - Depression [Unknown]
  - Suicidal ideation [Unknown]
